FAERS Safety Report 9770487 (Version 1)
Quarter: 2013Q4

REPORT INFORMATION
  Report Type: Spontaneous
  Country: US (occurrence: US)
  Receive Date: 20131218
  Receipt Date: 20131218
  Transmission Date: 20140711
  Serious: No
  Sender: FDA-Public Use
  Company Number: US-BIOGENIDEC-2013BI120022

PATIENT
  Age: 55 Year
  Sex: Female

DRUGS (19)
  1. TECFIDERA [Suspect]
     Indication: MULTIPLE SCLEROSIS
     Route: 048
     Dates: start: 20130523
  2. HYDROCHLOROTHIAZIDE [Concomitant]
     Dates: start: 20131021
  3. ESTRADIOL [Concomitant]
     Dates: start: 20131017
  4. ATENOLOL [Concomitant]
     Dates: start: 20131017
  5. SIMVASTATIN [Concomitant]
     Dates: start: 20130821
  6. ATENOLOL [Concomitant]
     Dates: start: 20130614
  7. VENLAFAXINE [Concomitant]
     Dates: start: 20130611
  8. GABAPENTIN [Concomitant]
     Dates: start: 20130417
  9. LISINOPRIL [Concomitant]
     Dates: start: 20130213
  10. GILENYA [Concomitant]
     Dates: start: 20101209
  11. ASPIRIN [Concomitant]
  12. VENLAFAXINE [Concomitant]
  13. ZOLPIDEM [Concomitant]
  14. ESTRADIOL [Concomitant]
  15. LEVOTHYROXIN [Concomitant]
  16. VITAMIN D3 [Concomitant]
  17. ATENOLOL [Concomitant]
  18. FISH OIL [Concomitant]
  19. MIRTAZAPINE [Concomitant]

REACTIONS (4)
  - Flatulence [Unknown]
  - Eye pruritus [Unknown]
  - Flushing [Unknown]
  - Abdominal pain [Unknown]
